APPROVED DRUG PRODUCT: OXYCODONE AND ACETAMINOPHEN
Active Ingredient: ACETAMINOPHEN; OXYCODONE HYDROCHLORIDE
Strength: 325MG;7.5MG
Dosage Form/Route: TABLET;ORAL
Application: A211708 | Product #003 | TE Code: AA
Applicant: GRANULES PHARMACEUTICALS INC
Approved: Oct 31, 2019 | RLD: No | RS: No | Type: RX